FAERS Safety Report 15323277 (Version 13)
Quarter: 2019Q1

REPORT INFORMATION
  Report Type: Spontaneous
  Country: IL (occurrence: IL)
  Receive Date: 20180827
  Receipt Date: 20190225
  Transmission Date: 20190417
  Serious: Yes (Life-Threatening, Hospitalization, Other)
  Sender: FDA-Public Use
  Company Number: IL-CELGENEUS-ISR-20180803817

PATIENT
  Age: 80 Year
  Sex: Female

DRUGS (29)
  1. VENETOCLAX. [Concomitant]
     Active Substance: VENETOCLAX
     Indication: ACUTE MYELOID LEUKAEMIA
     Dosage: 400 MILLIGRAM
     Route: 048
     Dates: start: 20180126, end: 20180803
  2. VENETOCLAX. [Concomitant]
     Active Substance: VENETOCLAX
     Dosage: 400 MILLIGRAM
     Route: 048
     Dates: start: 20180104, end: 20180124
  3. PREGABALIN. [Concomitant]
     Active Substance: PREGABALIN
     Dosage: 75 MILLIGRAM
     Route: 048
     Dates: start: 20180815, end: 20180911
  4. VENETOCLAX. [Concomitant]
     Active Substance: VENETOCLAX
     Dosage: 200 MILLIGRAM
     Route: 048
     Dates: start: 20180125, end: 20180125
  5. MAXITROL [Concomitant]
     Active Substance: DEXAMETHASONE\NEOMYCIN SULFATE\POLYMYXIN B SULFATE
     Indication: VITRECTOMY
     Dosage: 3 DROPS
     Route: 047
     Dates: start: 20180531
  6. OMEPRAZOLE. [Concomitant]
     Active Substance: OMEPRAZOLE
     Dosage: 80 MILLIGRAM
     Route: 048
     Dates: start: 20171225, end: 20171227
  7. SERETIDE D [Concomitant]
     Route: 055
     Dates: start: 20171230, end: 20171230
  8. SERETIDE D [Concomitant]
     Route: 055
     Dates: start: 20171231, end: 20171231
  9. FENTANYL CITRATE. [Concomitant]
     Active Substance: FENTANYL CITRATE
     Route: 048
     Dates: start: 20180804, end: 20180810
  10. AZACITIDINE. [Suspect]
     Active Substance: AZACITIDINE
     Indication: ACUTE MYELOID LEUKAEMIA
     Dosage: 75 MILLIGRAM/SQ. METER
     Route: 058
     Dates: start: 20180102, end: 20180718
  11. NEPAFENAC [Concomitant]
     Active Substance: NEPAFENAC
     Indication: VITRECTOMY
     Dosage: 9 DROPS
     Route: 047
     Dates: start: 20180531
  12. SERETIDE D [Concomitant]
     Route: 055
     Dates: start: 20171226, end: 20171227
  13. SERETIDE D [Concomitant]
     Route: 055
     Dates: start: 20180104, end: 20180108
  14. FENTANYL CITRATE. [Concomitant]
     Active Substance: FENTANYL CITRATE
     Route: 048
     Dates: start: 20180828, end: 20180912
  15. PREDNISOLONE. [Concomitant]
     Active Substance: PREDNISOLONE
     Indication: DEVICE DISLOCATION
     Dosage: 36 DROPS
     Route: 047
     Dates: start: 20180531
  16. SERETIDE D [Concomitant]
     Route: 055
     Dates: start: 20171228, end: 20171228
  17. VENETOCLAX. [Concomitant]
     Active Substance: VENETOCLAX
     Dosage: 200 MILLIGRAM
     Route: 048
     Dates: start: 20180103, end: 20180103
  18. OMEPRAZOLE. [Concomitant]
     Active Substance: OMEPRAZOLE
     Indication: PROPHYLAXIS
     Dosage: 80 MILLIGRAM
     Route: 048
     Dates: start: 20180803, end: 20180914
  19. ENOXAPARIN SODIUM. [Concomitant]
     Active Substance: ENOXAPARIN SODIUM
     Indication: EMBOLISM
     Dosage: 20 MILLIGRAM
     Route: 058
     Dates: start: 20180514, end: 20180914
  20. PREGABALIN. [Concomitant]
     Active Substance: PREGABALIN
     Dosage: 50 MILLIGRAM
     Route: 048
     Dates: start: 20180813, end: 20180814
  21. SERETIDE D [Concomitant]
     Route: 055
     Dates: start: 20180102, end: 20180103
  22. FENTANYL CITRATE. [Concomitant]
     Active Substance: FENTANYL CITRATE
     Indication: OSTEOMYELITIS
     Route: 048
     Dates: start: 20180810, end: 20180822
  23. OFLOXACIN. [Concomitant]
     Active Substance: OFLOXACIN
     Indication: VITRECTOMY
     Dosage: 9 DROPS
     Route: 047
     Dates: start: 20180531
  24. PREGABALIN. [Concomitant]
     Active Substance: PREGABALIN
     Indication: OSTEOMYELITIS
     Dosage: 25 MILLIGRAM
     Route: 048
     Dates: start: 20180812, end: 20180812
  25. SERETIDE D [Concomitant]
     Indication: ASTHMA
     Route: 055
     Dates: start: 20180109, end: 20180914
  26. VENETOCLAX. [Concomitant]
     Active Substance: VENETOCLAX
     Dosage: 100 MILLIGRAM
     Route: 048
     Dates: start: 20180102, end: 20180102
  27. OMEPRAZOLE. [Concomitant]
     Active Substance: OMEPRAZOLE
     Dosage: 80 MILLIGRAM
     Route: 048
     Dates: start: 20171229, end: 20180903
  28. SERETIDE D [Concomitant]
     Route: 055
     Dates: start: 20171229, end: 20171229
  29. SERETIDE D [Concomitant]
     Route: 055
     Dates: start: 20180101, end: 20180101

REACTIONS (3)
  - Osteomyelitis [Recovered/Resolved]
  - Headache [Recovered/Resolved]
  - Confusional state [Recovered/Resolved]

NARRATIVE: CASE EVENT DATE: 20180802
